FAERS Safety Report 5587985-5 (Version None)
Quarter: 2008Q1

REPORT INFORMATION
  Report Type: 
  Country: None (occurrence: None)
  Receive Date: 20080109
  Receipt Date: 20080109
  Transmission Date: 20080703
  Serious: Yes (Life-Threatening, Hospitalization, Disabling)
  Sender: FDA-Public Use
  Company Number: None

PATIENT
  Age: 43 Year
  Sex: Male
  Weight: 95.2554 kg

DRUGS (11)
  1. INDERAL [Suspect]
     Indication: TREMOR
     Dosage: 50 INH BID
     Route: 055
     Dates: start: 20070519, end: 20070619
  2. ADVAIR DISKUS 250/50 [Suspect]
     Indication: ASTHMA
     Dosage: 20 ORAL BID
     Route: 048
     Dates: start: 20070519, end: 20070524
  3. ASPIRIN [Concomitant]
  4. CLONAZEPAM [Concomitant]
  5. EUCERIN CREAM [Concomitant]
  6. LITHIUM CARBONATE [Concomitant]
  7. M.V.I. [Concomitant]
  8. NEOSPORIN [Concomitant]
  9. ZYPREXA [Concomitant]
  10. CHANTIX [Concomitant]
  11. AMBIEN [Concomitant]

REACTIONS (1)
  - TREMOR [None]
